FAERS Safety Report 18263983 (Version 1)
Quarter: 2020Q3

REPORT INFORMATION
  Report Type: Report from Study
  Country: GB (occurrence: GB)
  Receive Date: 20200914
  Receipt Date: 20200914
  Transmission Date: 20201103
  Serious: Yes (Death, Life-Threatening)
  Sender: FDA-Public Use
  Company Number: GB-BAYER-2020-197000

PATIENT
  Age: 70 Year
  Sex: Male
  Weight: 100 kg

DRUGS (4)
  1. WARFARIN [Concomitant]
     Active Substance: WARFARIN
     Indication: ANTICOAGULANT THERAPY
     Dosage: UNK
     Route: 065
  2. RED BLOOD CELLS [Concomitant]
     Active Substance: HUMAN RED BLOOD CELL
     Indication: TRANSFUSION
     Dosage: UNK
     Route: 065
     Dates: start: 20190929
  3. TRASYLOL [Suspect]
     Active Substance: APROTININ
     Indication: AORTIC DISSECTION
     Dosage: UNK
     Route: 065
     Dates: start: 20190929, end: 20190929
  4. HEPARIN [Concomitant]
     Active Substance: HEPARIN SODIUM
     Indication: ANTICOAGULANT THERAPY
     Dosage: 15 KILO?INTERNATIONAL UNIT TOTAL DURING SURGERY
     Route: 065
     Dates: start: 20190929, end: 20190929

REACTIONS (4)
  - Product use in unapproved indication [Unknown]
  - Gastrointestinal ischaemia [Fatal]
  - Off label use [Unknown]
  - Hepatic ischaemia [Fatal]

NARRATIVE: CASE EVENT DATE: 20190929
